FAERS Safety Report 15113562 (Version 1)
Quarter: 2018Q3

REPORT INFORMATION
  Report Type: Report from Study
  Country: TH (occurrence: TH)
  Receive Date: 20180706
  Receipt Date: 20180706
  Transmission Date: 20181010
  Serious: Yes (Hospitalization)
  Sender: FDA-Public Use
  Company Number: TH-AMGEN-THASL2018091698

PATIENT
  Age: 69 Year
  Sex: Female

DRUGS (2)
  1. KYPROLIS [Suspect]
     Active Substance: CARFILZOMIB
     Indication: PLASMA CELL MYELOMA
     Dosage: 20 MG, DAY1, DAY2, DAY8, DAY9, DAY15, DAY16 OF TREATMENT CYCLE
     Route: 065
     Dates: end: 201806
  2. KYPROLIS [Suspect]
     Active Substance: CARFILZOMIB
     Dosage: 20 MG, DAY1, DAY2, DAY8, DAY9, DAY15, DAY16 OF TREATMENT CYCLE
     Route: 065
     Dates: start: 20180703

REACTIONS (2)
  - Blood pressure abnormal [Unknown]
  - Blood glucose abnormal [Unknown]

NARRATIVE: CASE EVENT DATE: 20180621
